FAERS Safety Report 24319196 (Version 3)
Quarter: 2024Q4

REPORT INFORMATION
  Report Type: Report from Study
  Country: US (occurrence: US)
  Receive Date: 20240913
  Receipt Date: 20241004
  Transmission Date: 20250115
  Serious: Yes (Other)
  Sender: ABBVIE
  Company Number: US-ABBVIE-5918294

PATIENT
  Sex: Male
  Weight: 100 kg

DRUGS (2)
  1. IMBRUVICA [Suspect]
     Active Substance: IBRUTINIB
     Indication: Chronic lymphocytic leukaemia
     Dosage: 280 MILLIGRAM
     Route: 048
     Dates: start: 20230227
  2. LISINOPRIL [Suspect]
     Active Substance: LISINOPRIL
     Indication: Cardiovascular disorder
     Route: 065

REACTIONS (13)
  - Cardiac failure [Unknown]
  - Cardiovascular disorder [Unknown]
  - Nausea [Recovered/Resolved]
  - Muscle spasms [Not Recovered/Not Resolved]
  - Neuropathy peripheral [Not Recovered/Not Resolved]
  - Pain in extremity [Unknown]
  - Diarrhoea [Recovered/Resolved]
  - Fatigue [Recovering/Resolving]
  - Headache [Recovered/Resolved]
  - Flatulence [Recovering/Resolving]
  - Abdominal pain [Not Recovered/Not Resolved]
  - Neuropathy peripheral [Unknown]
  - Musculoskeletal pain [Not Recovered/Not Resolved]

NARRATIVE: CASE EVENT DATE: 20240101
